FAERS Safety Report 21264382 (Version 5)
Quarter: 2022Q3

REPORT INFORMATION
  Report Type: Spontaneous
  Country: IN (occurrence: IN)
  Receive Date: 20220829
  Receipt Date: 20220926
  Transmission Date: 20221026
  Serious: No
  Sender: FDA-Public Use
  Company Number: IN-MLMSERVICE-20220729-3706202-1

PATIENT
  Age: 14 Year
  Sex: Male

DRUGS (1)
  1. LEVETIRACETAM [Suspect]
     Active Substance: LEVETIRACETAM
     Indication: Seizure
     Dosage: 250 MILLIGRAM, BID (TABLET)
     Route: 048

REACTIONS (2)
  - Gingival hypertrophy [Recovered/Resolved]
  - Aphthous ulcer [Recovered/Resolved]
